FAERS Safety Report 16320045 (Version 3)
Quarter: 2020Q4

REPORT INFORMATION
  Report Type: Spontaneous
  Country: US (occurrence: US)
  Receive Date: 20190516
  Receipt Date: 20201214
  Transmission Date: 20210113
  Serious: Yes (Death, Other)
  Sender: FDA-Public Use
  Company Number: US-GLAXOSMITHKLINE-US2019GSK086847

PATIENT
  Age: 76 Year
  Sex: Male

DRUGS (5)
  1. PREVACID 24 HR [Suspect]
     Active Substance: LANSOPRAZOLE
     Indication: PRODUCT USED FOR UNKNOWN INDICATION
     Dosage: UNKNOWN, UNKNOWN
     Route: 048
  2. PRILOSEC [Suspect]
     Active Substance: OMEPRAZOLE MAGNESIUM
     Indication: PRODUCT USED FOR UNKNOWN INDICATION
     Dosage: 20 MG, QD
     Route: 065
  3. PREVACID [Suspect]
     Active Substance: LANSOPRAZOLE
     Indication: PRODUCT USED FOR UNKNOWN INDICATION
     Dosage: 30 MG, QD
     Route: 048
     Dates: start: 20060612, end: 20080903
  4. NEXIUM [Suspect]
     Active Substance: ESOMEPRAZOLE MAGNESIUM
     Indication: PRODUCT USED FOR UNKNOWN INDICATION
     Dosage: UNKNOWN, UNKNOWN
     Route: 065
  5. PROTONIX [Suspect]
     Active Substance: PANTOPRAZOLE SODIUM
     Indication: PRODUCT USED FOR UNKNOWN INDICATION
     Dosage: 40 MG, QD
     Route: 048
     Dates: start: 20060602, end: 20060612

REACTIONS (20)
  - Hypertensive nephropathy [Unknown]
  - Glomerulonephritis acute [Not Recovered/Not Resolved]
  - Proteinuria [Unknown]
  - Dysuria [Unknown]
  - Death [Fatal]
  - Arteriosclerosis coronary artery [Fatal]
  - Chronic kidney disease [Unknown]
  - Micturition urgency [Unknown]
  - Pollakiuria [Unknown]
  - Nephrolithiasis [Recovered/Resolved]
  - Dialysis [Unknown]
  - Nephrogenic anaemia [Unknown]
  - Nephrosclerosis [Unknown]
  - Diabetic nephropathy [Not Recovered/Not Resolved]
  - Acute kidney injury [Unknown]
  - Chronic kidney disease-mineral and bone disorder [Unknown]
  - Haemodialysis [Unknown]
  - End stage renal disease [Unknown]
  - Renal disorder [Unknown]
  - Nocturia [Unknown]

NARRATIVE: CASE EVENT DATE: 1978
